FAERS Safety Report 12668944 (Version 2)
Quarter: 2016Q3

REPORT INFORMATION
  Report Type: Spontaneous
  Country: SK (occurrence: SK)
  Receive Date: 20160820
  Receipt Date: 20160827
  Transmission Date: 20161109
  Serious: Yes (Death, Life-Threatening, Hospitalization)
  Sender: FDA-Public Use
  Company Number: SK-B.I. PHARMACEUTICALS,INC./RIDGEFIELD-2016-BI-54215SK

PATIENT
  Age: 77 Year
  Sex: Female

DRUGS (5)
  1. TEVAFOS [Concomitant]
     Indication: HYPERTENSION
     Dosage: 20 MG/12.5 MG
     Route: 048
  2. ANOPYRIN [Concomitant]
     Active Substance: ASPIRIN
     Indication: PRODUCT USED FOR UNKNOWN INDICATION
     Route: 048
  3. CARVEDIGAMMA [Concomitant]
     Indication: PRODUCT USED FOR UNKNOWN INDICATION
     Route: 048
  4. MOVALIS [Suspect]
     Active Substance: MELOXICAM
     Indication: BACK PAIN
     Route: 065
  5. STADAMET [Concomitant]
     Active Substance: METFORMIN HYDROCHLORIDE
     Indication: TYPE 2 DIABETES MELLITUS
     Dosage: 2000 MG
     Route: 048

REACTIONS (2)
  - Cardiopulmonary failure [Fatal]
  - Acute kidney injury [Fatal]
